FAERS Safety Report 5147198-8 (Version None)
Quarter: 2006Q4

REPORT INFORMATION
  Report Type: 
  Country: None (occurrence: None)
  Receive Date: 20061103
  Receipt Date: 20061020
  Transmission Date: 20070319
  Serious: No
  Sender: FDA-Public Use
  Company Number: DSA_81731_2006

PATIENT
  Age: 27 Year
  Sex: Male

DRUGS (3)
  1. XYREM [Suspect]
     Indication: NARCOLEPSY
     Dosage: 4.5 G NIGHTLY PO
     Route: 048
     Dates: start: 20060301
  2. CONCERTA [Concomitant]
  3. MEDIKINET [Concomitant]

REACTIONS (5)
  - BLOOD ELECTROLYTES DECREASED [None]
  - DEHYDRATION [None]
  - HYPERHIDROSIS [None]
  - NAUSEA [None]
  - VERTIGO [None]
